FAERS Safety Report 18281923 (Version 1)
Quarter: 2020Q3

REPORT INFORMATION
  Report Type: Spontaneous
  Country: US (occurrence: US)
  Receive Date: 20200916
  Receipt Date: 20200916
  Transmission Date: 20201103
  Serious: Yes (Other)
  Sender: FDA-Public Use
  Company Number: None

PATIENT
  Age: 48 Year
  Sex: Female

DRUGS (20)
  1. TERBINAFINE. [Concomitant]
     Active Substance: TERBINAFINE
  2. FEROUS SULFATE [Concomitant]
  3. SILDENAFIL. [Concomitant]
     Active Substance: SILDENAFIL
  4. TRAZODONE [Concomitant]
     Active Substance: TRAZODONE HYDROCHLORIDE
  5. OMEPRAZOLE. [Concomitant]
     Active Substance: OMEPRAZOLE
  6. FUROSEMIDE. [Concomitant]
     Active Substance: FUROSEMIDE
  7. FLONASE [Concomitant]
     Active Substance: FLUTICASONE PROPIONATE
  8. NARCAN [Concomitant]
     Active Substance: NALOXONE HYDROCHLORIDE
  9. UPTRAVI [Concomitant]
     Active Substance: SELEXIPAG
  10. SIMVASTATIN. [Concomitant]
     Active Substance: SIMVASTATIN
  11. IBUPROFEN. [Concomitant]
     Active Substance: IBUPROFEN
  12. AMOXICILLIN. [Concomitant]
     Active Substance: AMOXICILLIN
  13. NORCO [Concomitant]
     Active Substance: ACETAMINOPHEN\HYDROCODONE BITARTRATE
  14. ALBUTEROL HF [Concomitant]
  15. OPSUMIT [Suspect]
     Active Substance: MACITENTAN
     Indication: PULMONARY ARTERIAL HYPERTENSION
     Route: 048
     Dates: start: 201801
  16. DULOXETINE. [Concomitant]
     Active Substance: DULOXETINE
  17. TRIAMCINOLONE CREAM [Concomitant]
     Active Substance: TRIAMCINOLONE
  18. CEPHALEXIN. [Concomitant]
     Active Substance: CEPHALEXIN
  19. BACLOFEN. [Concomitant]
     Active Substance: BACLOFEN
  20. ZOLIPDEM [Concomitant]
     Active Substance: ZOLPIDEM TARTRATE

REACTIONS (3)
  - Neck pain [None]
  - Road traffic accident [None]
  - Back pain [None]

NARRATIVE: CASE EVENT DATE: 20200905
